FAERS Safety Report 4936725-9 (Version None)
Quarter: 2006Q1

REPORT INFORMATION
  Report Type: 
  Country: None (occurrence: None)
  Receive Date: 20060302
  Receipt Date: 20060215
  Transmission Date: 20060701
  Serious: Yes (Death, Other)
  Sender: FDA-Public Use
  Company Number: DE200602002981

PATIENT
  Age: 12 Year

DRUGS (1)
  1. GEMZAR [Suspect]
     Indication: LEUKAEMIA RECURRENT
     Dosage: 1200 MG/M2, OTHER, INTRAVENOUS
     Route: 042

REACTIONS (2)
  - GASTROINTESTINAL HAEMORRHAGE [None]
  - THROMBOCYTOPENIA [None]
